FAERS Safety Report 16981176 (Version 1)
Quarter: 2019Q4

REPORT INFORMATION
  Report Type: Report from Study
  Country: US (occurrence: US)
  Receive Date: 20191031
  Receipt Date: 20191031
  Transmission Date: 20200122
  Serious: Yes (Death, Hospitalization)
  Sender: FDA-Public Use
  Company Number: US-ACTELION-A-NJ2019-188576

PATIENT
  Age: 42 Year
  Sex: Male
  Weight: 87.98 kg

DRUGS (5)
  1. TADALAFIL. [Concomitant]
     Active Substance: TADALAFIL
  2. OPSUMIT [Suspect]
     Active Substance: MACITENTAN
     Indication: PULMONARY HYPERTENSION
     Dosage: 10 MG, QD
     Route: 048
  3. LITHIUM. [Concomitant]
     Active Substance: LITHIUM
  4. DILTIAZEM. [Concomitant]
     Active Substance: DILTIAZEM
  5. ADCIRCA [Concomitant]
     Active Substance: TADALAFIL

REACTIONS (7)
  - Weight fluctuation [Unknown]
  - Weight decreased [Unknown]
  - Atrophy [Unknown]
  - Pericardial effusion [Unknown]
  - Vomiting [Unknown]
  - Asthenia [Unknown]
  - Death [Fatal]

NARRATIVE: CASE EVENT DATE: 20191019
